FAERS Safety Report 5135930-9 (Version None)
Quarter: 2006Q4

REPORT INFORMATION
  Report Type: 
  Country: None (occurrence: None)
  Receive Date: 20061020
  Receipt Date: 20061004
  Transmission Date: 20070319
  Serious: Yes (Other)
  Sender: FDA-Public Use
  Company Number: 148683ISR

PATIENT
  Age: 53 Year
  Sex: Male

DRUGS (2)
  1. FENOFIBRATE [Suspect]
     Indication: DYSLIPIDAEMIA
     Dosage: 267.5 MG
  2. GLICLAZIDE [Suspect]
     Dosage: 60 MG

REACTIONS (3)
  - DIARRHOEA [None]
  - DRUG INTERACTION [None]
  - RHABDOMYOLYSIS [None]
